FAERS Safety Report 5897877-X (Version None)
Quarter: 2008Q3

REPORT INFORMATION
  Report Type: 
  Country: None (occurrence: None)
  Receive Date: 20080925
  Receipt Date: 20080919
  Transmission Date: 20090109
  Serious: Yes (Other)
  Sender: FDA-Public Use
  Company Number: US-ASTRAZENECA-2008UW19714

PATIENT
  Age: 17 Year
  Sex: Female

DRUGS (4)
  1. SEROQUEL [Suspect]
     Indication: PSYCHOTIC DISORDER
     Dosage: UP TO 800 MG
     Route: 048
  2. SEROQUEL [Suspect]
     Route: 048
  3. SEROQUEL XR [Suspect]
     Route: 048
  4. LITHIUM [Concomitant]

REACTIONS (3)
  - LIPIDS INCREASED [None]
  - METABOLIC FUNCTION TEST ABNORMAL [None]
  - WEIGHT INCREASED [None]
